FAERS Safety Report 23456578 (Version 1)
Quarter: 2024Q1

REPORT INFORMATION
  Report Type: Spontaneous
  Country: US (occurrence: US)
  Receive Date: 20240130
  Receipt Date: 20240130
  Transmission Date: 20240410
  Serious: No
  Sender: FDA-Public Use
  Company Number: US-KARYOPHARM-2023KPT001999

PATIENT

DRUGS (15)
  1. XPOVIO [Suspect]
     Active Substance: SELINEXOR
     Indication: Plasma cell myeloma
     Dosage: 40 MG, WEEKLY
     Route: 048
     Dates: start: 20230918
  2. XPOVIO [Suspect]
     Active Substance: SELINEXOR
     Dosage: 80 MG, WEEKLY
     Route: 048
     Dates: end: 202310
  3. XPOVIO [Suspect]
     Active Substance: SELINEXOR
     Dosage: 20 MG, WEEKLY
     Route: 048
     Dates: start: 2023
  4. ONDANSETRON [Concomitant]
     Active Substance: ONDANSETRON
  5. AMLODIPINE [Concomitant]
     Active Substance: AMLODIPINE BESYLATE
  6. TRESIBA [Concomitant]
     Active Substance: INSULIN DEGLUDEC
  7. DEXAMETHASONE [Concomitant]
     Active Substance: DEXAMETHASONE
  8. ALLOPURINOL [Concomitant]
     Active Substance: ALLOPURINOL
  9. ATORVASTATIN [Concomitant]
     Active Substance: ATORVASTATIN
  10. DARZALEX [Concomitant]
     Active Substance: DARATUMUMAB
  11. GLIPIZIDE [Concomitant]
     Active Substance: GLIPIZIDE
  12. HUMALOG [Concomitant]
     Active Substance: INSULIN LISPRO
  13. XGEVA [Concomitant]
     Active Substance: DENOSUMAB
  14. BUMETANIDE [Concomitant]
     Active Substance: BUMETANIDE
  15. SUCRALFATE [Concomitant]
     Active Substance: SUCRALFATE

REACTIONS (4)
  - Blood glucose increased [Unknown]
  - Hepatic enzyme increased [Not Recovered/Not Resolved]
  - Asthenia [Unknown]
  - Nausea [Unknown]

NARRATIVE: CASE EVENT DATE: 20230901
